FAERS Safety Report 13586080 (Version 1)
Quarter: 2017Q2

REPORT INFORMATION
  Report Type: Spontaneous
  Country: PT (occurrence: PT)
  Receive Date: 20170526
  Receipt Date: 20170526
  Transmission Date: 20170830
  Serious: Yes (Death, Other)
  Sender: FDA-Public Use
  Company Number: PT-CELGENEUS-PRT-20170506561

PATIENT

DRUGS (1)
  1. AZACITIDINE. [Suspect]
     Active Substance: AZACITIDINE
     Indication: MYELODYSPLASTIC SYNDROME
     Route: 065

REACTIONS (7)
  - Infection [Fatal]
  - Acute myeloid leukaemia [Unknown]
  - Multiple organ dysfunction syndrome [Fatal]
  - Injection site reaction [Unknown]
  - Neutropenia [Unknown]
  - Lung adenocarcinoma [Unknown]
  - Thrombocytopenia [Unknown]
